FAERS Safety Report 14479382 (Version 2)
Quarter: 2018Q1

REPORT INFORMATION
  Report Type: Spontaneous
  Country: DE (occurrence: DE)
  Receive Date: 20180202
  Receipt Date: 20180215
  Transmission Date: 20180509
  Serious: Yes (Hospitalization, Other)
  Sender: FDA-Public Use
  Company Number: DE-AUROBINDO-AUR-APL-2018-004125

PATIENT
  Sex: Male

DRUGS (20)
  1. CYCLOPHOSPHAMIDE. [Suspect]
     Active Substance: CYCLOPHOSPHAMIDE
     Indication: B-CELL LYMPHOMA
     Dosage: ()
     Route: 064
  2. PREDNISONE. [Suspect]
     Active Substance: PREDNISONE
  3. LOPINAVIR [Suspect]
     Active Substance: LOPINAVIR
  4. ZIDOVUDINE. [Concomitant]
     Active Substance: ZIDOVUDINE
     Indication: ANTIVIRAL PROPHYLAXIS
     Dosage: 1.5 MG/KG, BID FOR 10 DAYS
     Route: 042
  5. EMTRIVA [Suspect]
     Active Substance: EMTRICITABINE
     Indication: HIV INFECTION
     Dosage: ()
     Route: 064
  6. CYCLOPHOSPHAMIDE. [Suspect]
     Active Substance: CYCLOPHOSPHAMIDE
  7. RITONAVIR. [Suspect]
     Active Substance: RITONAVIR
  8. ZIDOVUDINE. [Concomitant]
     Active Substance: ZIDOVUDINE
     Dosage: 1.5 MG/KG, BID FOR 10 DAYS
     Route: 042
  9. RITONAVIR. [Suspect]
     Active Substance: RITONAVIR
     Indication: HIV INFECTION
     Dosage: ()
     Route: 064
  10. BETAMETHASONE. [Suspect]
     Active Substance: BETAMETHASONE
     Indication: MATERNAL THERAPY TO ENHANCE FOETAL LUNG MATURITY
     Dosage: ()
     Route: 064
  11. DOXORUBICIN [Suspect]
     Active Substance: DOXORUBICIN
     Dosage: ()
     Route: 064
  12. RITUXIMAB. [Suspect]
     Active Substance: RITUXIMAB
     Indication: B-CELL LYMPHOMA
     Dosage: ()
     Route: 064
  13. VINCRISTINE [Suspect]
     Active Substance: VINCRISTINE
  14. DOXORUBICIN [Suspect]
     Active Substance: DOXORUBICIN
     Indication: B-CELL LYMPHOMA
     Dosage: ()
     Route: 064
  15. VIREAD [Suspect]
     Active Substance: TENOFOVIR DISOPROXIL FUMARATE
     Indication: HIV INFECTION
     Dosage: ()
     Route: 064
  16. RITUXIMAB. [Suspect]
     Active Substance: RITUXIMAB
  17. VINCRISTINE [Suspect]
     Active Substance: VINCRISTINE
     Indication: B-CELL LYMPHOMA
     Dosage: ()
     Route: 064
  18. LOPINAVIR [Suspect]
     Active Substance: LOPINAVIR
     Indication: HIV INFECTION
     Dosage: ()
     Route: 064
  19. BETAMETHASONE. [Suspect]
     Active Substance: BETAMETHASONE
     Dosage: ()
     Route: 064
  20. PREDNISONE. [Suspect]
     Active Substance: PREDNISONE
     Indication: B-CELL LYMPHOMA
     Dosage: ()
     Route: 064

REACTIONS (4)
  - Foetal exposure during pregnancy [Unknown]
  - Premature baby [Unknown]
  - Hypogammaglobulinaemia [Unknown]
  - Bronchiolitis [Unknown]
